FAERS Safety Report 4577031-4 (Version None)
Quarter: 2005Q1

REPORT INFORMATION
  Report Type: 
  Country: None (occurrence: None)
  Receive Date: 20050210
  Receipt Date: 20050203
  Transmission Date: 20050727
  Serious: Yes (Hospitalization)
  Sender: FDA-Public Use
  Company Number: GB-JNJFOC-20050201610

PATIENT
  Age: 69 Year

DRUGS (3)
  1. IBUPROFEN [Suspect]
     Indication: ARTHRITIS
     Route: 049
  2. LISINOPRIL [Suspect]
     Indication: HYPERTENSION
     Route: 049
  3. BENDROFLUAZIDE [Concomitant]
     Route: 049

REACTIONS (2)
  - REFLUX OESOPHAGITIS [None]
  - RENAL FAILURE ACUTE [None]
